FAERS Safety Report 13739034 (Version 2)
Quarter: 2017Q3

REPORT INFORMATION
  Report Type: Spontaneous
  Country: US (occurrence: US)
  Receive Date: 20170710
  Receipt Date: 20170817
  Transmission Date: 20171127
  Serious: Yes (Other)
  Sender: FDA-Public Use
  Company Number: US-SAOL THERAPEUTICS-2017SAO00829

PATIENT
  Age: 42 Year
  Sex: Male
  Weight: 102 kg

DRUGS (2)
  1. BACLOFEN. [Suspect]
     Active Substance: BACLOFEN
     Dosage: UNK
     Route: 037
     Dates: start: 201412
  2. LIORESAL [Suspect]
     Active Substance: BACLOFEN
     Indication: MUSCLE SPASTICITY
     Dosage: 375 ?G, \DAY
     Route: 037

REACTIONS (6)
  - Fistula [Unknown]
  - Implant site infection [Recovered/Resolved]
  - Urinary tract infection [Unknown]
  - Animal scratch [Recovered/Resolved]
  - Wound infection staphylococcal [Recovered/Resolved]
  - Pseudomonas infection [Unknown]

NARRATIVE: CASE EVENT DATE: 20151027
